FAERS Safety Report 4828796-5 (Version None)
Quarter: 2005Q4

REPORT INFORMATION
  Report Type: 
  Country: None (occurrence: None)
  Receive Date: 20051014
  Receipt Date: 20050620
  Transmission Date: 20060501
  Serious: No
  Sender: FDA-Public Use
  Company Number: 2005SP001333

PATIENT
  Age: 41 Year
  Sex: Female
  Weight: 57.6068 kg

DRUGS (2)
  1. LUNESTA [Suspect]
     Indication: INSOMNIA
     Dosage: ORAL
     Route: 048
     Dates: start: 20050501, end: 20050601
  2. AMBIEN [Concomitant]

REACTIONS (2)
  - DYSGEUSIA [None]
  - NIGHTMARE [None]
